FAERS Safety Report 7285089-7 (Version None)
Quarter: 2011Q1

REPORT INFORMATION
  Report Type: 
  Country: None (occurrence: None)
  Receive Date: 20110210
  Receipt Date: 20110128
  Transmission Date: 20110831
  Serious: Yes (Other)
  Sender: FDA-Public Use
  Company Number: PHHY2010JP82760

PATIENT
  Sex: Female

DRUGS (5)
  1. MELBIN [Concomitant]
     Dosage: UNK
     Route: 048
     Dates: start: 20070822
  2. PANALDINE [Concomitant]
     Dosage: UNK
     Route: 048
     Dates: start: 20070822
  3. ASPIRIN [Concomitant]
     Dosage: UNK
     Route: 048
     Dates: start: 20070822
  4. MITIGLINIDE [Concomitant]
     Dosage: UNK
     Route: 048
     Dates: start: 20070822
  5. VALSARTAN [Suspect]
     Indication: HYPERTENSION
     Dosage: 80 MG DAILY
     Route: 048
     Dates: start: 20080306, end: 20090527

REACTIONS (8)
  - FEMORAL NECK FRACTURE [None]
  - FALL [None]
  - SURGERY [None]
  - BLOOD UREA INCREASED [None]
  - BLOOD GLUCOSE INCREASED [None]
  - PAIN [None]
  - DEHYDRATION [None]
  - HYPOPHAGIA [None]
